FAERS Safety Report 6653167-9 (Version None)
Quarter: 2010Q1

REPORT INFORMATION
  Report Type: 
  Country: None (occurrence: None)
  Receive Date: 20100326
  Receipt Date: 20100323
  Transmission Date: 20100710
  Serious: Yes (Death, Hospitalization, Other)
  Sender: FDA-Public Use
  Company Number: PHHY2010BR17940

PATIENT
  Age: 74 Year
  Sex: Male

DRUGS (7)
  1. EXELON [Suspect]
     Indication: DEMENTIA ALZHEIMER'S TYPE
     Dosage: 1.5 MG, BID
     Route: 048
  2. EXELON [Suspect]
     Dosage: 3 MG, BID
     Route: 048
  3. EXELON [Suspect]
     Dosage: 4.5 MG, BID
     Route: 048
  4. EXELON [Suspect]
     Dosage: 6 MG, BID
     Route: 048
  5. SERTRALINE HCL [Concomitant]
     Indication: DEPRESSION
     Dosage: 75 MG, QD
  6. ALOIS [Concomitant]
     Indication: DEMENTIA ALZHEIMER'S TYPE
     Dosage: 20 MG, QD
  7. SEROQUEL [Concomitant]
     Dosage: 25 MG, QD

REACTIONS (12)
  - ACUTE RESPIRATORY FAILURE [None]
  - DEBRIDEMENT [None]
  - DEMENTIA ALZHEIMER'S TYPE [None]
  - ESCHAR [None]
  - GAIT DISTURBANCE [None]
  - NECROTISING FASCIITIS [None]
  - PULMONARY SEPSIS [None]
  - PYREXIA [None]
  - SENILE DEMENTIA [None]
  - TESTICULAR RETRACTION [None]
  - URINARY TRACT INFECTION [None]
  - WEIGHT DECREASED [None]
